FAERS Safety Report 12185641 (Version 1)
Quarter: 2016Q1

REPORT INFORMATION
  Report Type: Spontaneous
  Country: US (occurrence: US)
  Receive Date: 20160316
  Receipt Date: 20160316
  Transmission Date: 20160526
  Serious: No
  Sender: FDA-Public Use
  Company Number: US-LUNDBECK-DKLU2010061

PATIENT

DRUGS (3)
  1. KEPPRA [Suspect]
     Active Substance: LEVETIRACETAM
     Indication: SEIZURE
     Route: 065
  2. ONFI [Suspect]
     Active Substance: CLOBAZAM
     Indication: SEIZURE
     Route: 065
  3. TOPAMAX [Suspect]
     Active Substance: TOPIRAMATE
     Indication: SEIZURE
     Route: 065

REACTIONS (1)
  - Drug ineffective [Unknown]
